FAERS Safety Report 4444768-7 (Version None)
Quarter: 2004Q3

REPORT INFORMATION
  Report Type: 
  Country: None (occurrence: None)
  Receive Date: 20040909
  Receipt Date: 20040309
  Transmission Date: 20050211
  Serious: Yes (Hospitalization, Other)
  Sender: FDA-Public Use
  Company Number: PHNU2004DE01190

PATIENT
  Age: 74 Year
  Sex: Male

DRUGS (1)
  1. LOCOL [Suspect]
     Dosage: 40 MG DAILY
     Route: 048
     Dates: end: 20040304

REACTIONS (7)
  - BLOOD CREATININE INCREASED [None]
  - CEREBROVASCULAR ACCIDENT [None]
  - DIALYSIS [None]
  - FALL [None]
  - MYOGLOBIN BLOOD INCREASED [None]
  - RENAL FAILURE ACUTE [None]
  - RHABDOMYOLYSIS [None]
